FAERS Safety Report 8560654-5 (Version None)
Quarter: 2012Q3

REPORT INFORMATION
  Report Type: 
  Country: None (occurrence: None)
  Receive Date: 20120802
  Receipt Date: 20120727
  Transmission Date: 20120928
  Serious: Yes (Other)
  Sender: FDA-Public Use
  Company Number: PHHY2012JP057493

PATIENT
  Age: 50 Year
  Sex: Female

DRUGS (1)
  1. LAMISIL [Suspect]
     Indication: ONYCHOMYCOSIS
     Dosage: 125 MG DAILY
     Route: 048
     Dates: start: 20120501

REACTIONS (4)
  - VIRAL INFECTION [None]
  - LIVER FUNCTION TEST ABNORMAL [None]
  - MALAISE [None]
  - PYREXIA [None]
